FAERS Safety Report 6667112-3 (Version None)
Quarter: 2010Q2

REPORT INFORMATION
  Report Type: 
  Country: None (occurrence: None)
  Receive Date: 20100402
  Receipt Date: 20100402
  Transmission Date: 20101027
  Serious: No
  Sender: FDA-Public Use
  Company Number: None

PATIENT
  Age: 47 Year
  Sex: Female
  Weight: 78.9259 kg

DRUGS (1)
  1. FLUTICASONE PROPIONATE [Suspect]
     Indication: SINUSITIS
     Dosage: 2 SPRAYS DAILY NASAL
     Route: 045
     Dates: start: 20100311, end: 20100325

REACTIONS (2)
  - ORAL FUNGAL INFECTION [None]
  - PRODUCT CONTAMINATION [None]
